FAERS Safety Report 15898007 (Version 1)
Quarter: 2019Q1

REPORT INFORMATION
  Report Type: Spontaneous
  Country: US (occurrence: US)
  Receive Date: 20190201
  Receipt Date: 20190201
  Transmission Date: 20190417
  Serious: No
  Sender: FDA-Public Use
  Company Number: US-LUPIN PHARMACEUTICALS INC.-2018-02251

PATIENT
  Age: 16 Year
  Sex: Female
  Weight: 55.78 kg

DRUGS (1)
  1. ESCITALOPRAM OXALATE TABLETS USP, 20 MG [Suspect]
     Active Substance: ESCITALOPRAM OXALATE
     Indication: GENERALISED ANXIETY DISORDER
     Dosage: UNK UNK, QD
     Route: 048

REACTIONS (2)
  - Vomiting [Not Recovered/Not Resolved]
  - Food allergy [Unknown]

NARRATIVE: CASE EVENT DATE: 20180130
